FAERS Safety Report 6192514-1 (Version None)
Quarter: 2009Q2

REPORT INFORMATION
  Report Type: 
  Country: None (occurrence: None)
  Receive Date: 20090518
  Receipt Date: 20090508
  Transmission Date: 20091009
  Serious: Yes (Other)
  Sender: FDA-Public Use
  Company Number: PHHY2009US17561

PATIENT
  Age: 63 Year
  Sex: Female

DRUGS (12)
  1. OLIZUMAB [Suspect]
     Indication: ASTHMA
     Dosage: 300 MG
  2. DICLOFENAC [Suspect]
  3. MONTELUKAST [Concomitant]
  4. ALBUTEROL [Concomitant]
  5. CROMOLYN SODIUM [Concomitant]
  6. BECLOMETHASONE DIPROPIONATE [Concomitant]
  7. CETRIZINE [Concomitant]
  8. FLUTICASONE [Concomitant]
  9. ESOMEPRAZOLE MAGNESIUM [Concomitant]
  10. LISINOPRIL [Concomitant]
  11. HYDROCHLOROTHIAZIDE [Concomitant]
  12. ATORVASTATIN [Concomitant]

REACTIONS (15)
  - ACANTHOSIS [None]
  - BIOPSY SKIN ABNORMAL [None]
  - EOSINOPHILIC CELLULITIS [None]
  - EPIDERMAL NECROSIS [None]
  - GRANULOMA SKIN [None]
  - HYPERKERATOSIS [None]
  - LICHEN PLANUS [None]
  - LYMPHOCYTIC INFILTRATION [None]
  - ORAL DISORDER [None]
  - PIGMENTATION BUCCAL [None]
  - PRURITUS [None]
  - RASH GENERALISED [None]
  - RASH PAPULAR [None]
  - SKIN LESION [None]
  - TONGUE DISCOLOURATION [None]
